FAERS Safety Report 24068475 (Version 1)
Quarter: 2024Q3

REPORT INFORMATION
  Report Type: Spontaneous
  Country: US (occurrence: US)
  Receive Date: 20240710
  Receipt Date: 20240710
  Transmission Date: 20241016
  Serious: No
  Sender: ROCHE
  Company Number: US-ROCHE-3550667

PATIENT

DRUGS (2)
  1. VABYSMO [Suspect]
     Active Substance: FARICIMAB\FARICIMAB-SVOA
     Indication: Diabetic retinal oedema
     Route: 065
  2. OZURDEX [Concomitant]
     Active Substance: DEXAMETHASONE

REACTIONS (4)
  - Visual impairment [Unknown]
  - Uveitis [Unknown]
  - Sarcoidosis [Unknown]
  - Eye inflammation [Unknown]
